FAERS Safety Report 6743269-0 (Version None)
Quarter: 2010Q2

REPORT INFORMATION
  Report Type: 
  Country: None (occurrence: None)
  Receive Date: 20100527
  Receipt Date: 20100524
  Transmission Date: 20101027
  Serious: Yes (Hospitalization)
  Sender: FDA-Public Use
  Company Number: US-RB-005763-10

PATIENT
  Age: 52 Year
  Sex: Female

DRUGS (3)
  1. SUBOXONE [Suspect]
     Route: 060
     Dates: start: 20080101
  2. ALBUTEROL [Concomitant]
     Dosage: DOSING DETAILS UNKNOWN
     Route: 065
  3. ALBUTEROL [Concomitant]
     Indication: EMPHYSEMA
     Dosage: DOSING DETAILS UNKNOWN
     Route: 065

REACTIONS (4)
  - CHRONIC OBSTRUCTIVE PULMONARY DISEASE [None]
  - DYSPNOEA [None]
  - EMPHYSEMA [None]
  - HEADACHE [None]
